FAERS Safety Report 19729639 (Version 1)
Quarter: 2021Q3

REPORT INFORMATION
  Report Type: Spontaneous
  Country: US (occurrence: US)
  Receive Date: 20210821
  Receipt Date: 20210821
  Transmission Date: 20211014
  Serious: No
  Sender: FDA-Public Use
  Company Number: US-ELI_LILLY_AND_COMPANY-US202108008879

PATIENT
  Age: 58 Year
  Sex: Male

DRUGS (2)
  1. BASAGLAR [Suspect]
     Active Substance: INSULIN GLARGINE
     Indication: TYPE 2 DIABETES MELLITUS
     Dosage: 20 U, EACH EVENING (AT BEDTIME)
     Route: 065
     Dates: start: 20210502
  2. BASAGLAR [Suspect]
     Active Substance: INSULIN GLARGINE
     Dosage: 20 U, EACH EVENING (AT BEDTIME)
     Route: 065

REACTIONS (2)
  - Accidental underdose [Unknown]
  - Visual impairment [Unknown]

NARRATIVE: CASE EVENT DATE: 202106
